FAERS Safety Report 5871400-8 (Version None)
Quarter: 2008Q3

REPORT INFORMATION
  Report Type: 
  Country: None (occurrence: None)
  Receive Date: 20080905
  Receipt Date: 20080826
  Transmission Date: 20090109
  Serious: Yes (Other)
  Sender: FDA-Public Use
  Company Number: PHHY2008JP19353

PATIENT
  Age: 74 Year
  Sex: Male

DRUGS (5)
  1. LAMISIL [Suspect]
     Indication: ONYCHOMYCOSIS
     Dosage: 125 MG/DAY
     Route: 048
     Dates: start: 20080809, end: 20080819
  2. LAMISIL [Suspect]
     Indication: BODY TINEA
  3. LAMISIL [Suspect]
     Dosage: UNK
     Route: 061
     Dates: start: 20080809, end: 20080819
  4. LAMISIL [Suspect]
  5. ALESION [Suspect]
     Indication: URTICARIA
     Dosage: 20 MG
     Route: 048
     Dates: start: 20080728, end: 20080819

REACTIONS (2)
  - PRURITUS [None]
  - SKIN EXFOLIATION [None]
